FAERS Safety Report 7784274-5 (Version None)
Quarter: 2011Q3

REPORT INFORMATION
  Report Type: 
  Country: None (occurrence: None)
  Receive Date: 20110928
  Receipt Date: 20110914
  Transmission Date: 20111222
  Serious: Yes (Other)
  Sender: FDA-Public Use
  Company Number: PHEH2011US04164

PATIENT
  Sex: Male

DRUGS (10)
  1. DIOVAN [Suspect]
     Dosage: UNK UKN, UNK
  2. DOXAZOSIN MESYLATE [Suspect]
     Indication: PROSTATIC DISORDER
     Dosage: 4 MG, UNK
  3. CARISOPRODOL [Concomitant]
     Dosage: 350 MG, 1 PER WEEK
  4. CYCLOBENZAPRINE HYDROCHLORIDE [Suspect]
     Dosage: UNK UKN, UNK
  5. EXFORGE [Suspect]
     Dosage: 81 MG, 1 PER DAY
  6. HYDROCHLOROTHIAZIDE [Suspect]
     Dosage: UNK UKN, UNK
  7. ASPIRIN [Suspect]
     Dosage: UNK UKN, UNK
  8. SIMVASTATIN [Concomitant]
     Dosage: 80 MG, UNK
  9. VALTURNA [Suspect]
     Indication: HYPERTENSION
     Dosage: UNK UKN, 300MG ALISKIREN/ 320MG VALSARTAN DAILY
     Route: 048
     Dates: start: 20110803
  10. ALPRAZOLAM [Concomitant]
     Dosage: 0.05 MG, UNK

REACTIONS (8)
  - BLOOD PRESSURE DECREASED [None]
  - SOMNOLENCE [None]
  - LOSS OF CONSCIOUSNESS [None]
  - HEADACHE [None]
  - ERECTION INCREASED [None]
  - MUSCLE SPASMS [None]
  - DIZZINESS [None]
  - CARDIAC FIBRILLATION [None]
